FAERS Safety Report 7445537-6 (Version None)
Quarter: 2011Q2

REPORT INFORMATION
  Report Type: 
  Country: None (occurrence: None)
  Receive Date: 20110429
  Receipt Date: 20091217
  Transmission Date: 20111010
  Serious: Yes (Death)
  Sender: FDA-Public Use
  Company Number: HN-PFIZER INC-2011090803

PATIENT
  Age: 43 Year
  Sex: Male

DRUGS (3)
  1. LIPITOR [Suspect]
     Dosage: 80 MG, UNK
  2. NORVASC [Concomitant]
     Dosage: 5 MG, UNK
  3. LIPITOR [Suspect]
     Dosage: 20 MG, UNK

REACTIONS (1)
  - DEATH [None]
